FAERS Safety Report 7338893-0 (Version None)
Quarter: 2011Q1

REPORT INFORMATION
  Report Type: 
  Country: None (occurrence: None)
  Receive Date: 20110308
  Receipt Date: 20110216
  Transmission Date: 20110831
  Serious: Yes (Other)
  Sender: FDA-Public Use
  Company Number: FR-SANOFI-AVENTIS-2010SA073359

PATIENT
  Age: 8 Year
  Sex: Female

DRUGS (2)
  1. SOLOSTAR [Suspect]
     Route: 058
  2. LANTUS [Suspect]
     Route: 058

REACTIONS (1)
  - DEVICE MALFUNCTION [None]
